FAERS Safety Report 17734796 (Version 1)
Quarter: 2020Q2

REPORT INFORMATION
  Report Type: Spontaneous
  Country: CN (occurrence: CN)
  Receive Date: 20200501
  Receipt Date: 20200501
  Transmission Date: 20200714
  Serious: Yes (Hospitalization)
  Sender: FDA-Public Use
  Company Number: CN-PFIZER INC-2020174484

PATIENT
  Age: 92 Year
  Sex: Male
  Weight: 70 kg

DRUGS (4)
  1. GLUCOSE [Concomitant]
     Active Substance: DEXTROSE
     Indication: ATRIAL FIBRILLATION
     Dosage: 250 ML, 1X/DAY
     Route: 041
     Dates: start: 20200424, end: 20200424
  2. TAZOCIN [Suspect]
     Active Substance: PIPERACILLIN SODIUM\TAZOBACTAM SODIUM
     Indication: ANTIINFLAMMATORY THERAPY
     Dosage: 4.5 G, 3X/DAY
     Route: 041
     Dates: start: 20200424, end: 20200424
  3. KE DA LONG [Concomitant]
     Indication: ATRIAL FIBRILLATION
     Dosage: 450 MG, 1X/DAY
     Route: 041
     Dates: start: 20200424, end: 20200424
  4. SODIUM CHLORIDE. [Concomitant]
     Active Substance: SODIUM CHLORIDE
     Indication: VEHICLE SOLUTION USE
     Dosage: 50 ML, 3X/DAY
     Route: 041
     Dates: start: 20200424, end: 20200424

REACTIONS (5)
  - Dyspnoea [Recovering/Resolving]
  - Face oedema [Unknown]
  - Pruritus [Unknown]
  - Blood pressure decreased [Unknown]
  - Vomiting [Recovering/Resolving]

NARRATIVE: CASE EVENT DATE: 20200424
